FAERS Safety Report 8102533-3 (Version None)
Quarter: 2012Q1

REPORT INFORMATION
  Report Type: 
  Country: None (occurrence: None)
  Receive Date: 20120126
  Receipt Date: 20120112
  Transmission Date: 20120608
  Serious: Yes (Other)
  Sender: FDA-Public Use
  Company Number: JPI-P-017006

PATIENT
  Age: 49 Year
  Sex: Male
  Weight: 85.7298 kg

DRUGS (15)
  1. XYREM [Suspect]
     Indication: NARCOLEPSY
     Dosage: SEE IMAGE
     Route: 048
     Dates: start: 20100820
  2. XYREM [Suspect]
     Indication: SOMNOLENCE
     Dosage: SEE IMAGE
     Route: 048
     Dates: start: 20100820
  3. XYREM [Suspect]
     Indication: NARCOLEPSY
     Dosage: SEE IMAGE
     Route: 048
     Dates: start: 20110101
  4. XYREM [Suspect]
     Indication: SOMNOLENCE
     Dosage: SEE IMAGE
     Route: 048
     Dates: start: 20110101
  5. XYREM [Suspect]
     Indication: NARCOLEPSY
     Dosage: SEE IMAGE
     Route: 048
     Dates: start: 20110825, end: 20110101
  6. XYREM [Suspect]
     Indication: SOMNOLENCE
     Dosage: SEE IMAGE
     Route: 048
     Dates: start: 20110825, end: 20110101
  7. BRIMONIDINE TARTRATE [Concomitant]
  8. METRONIDAZOLE [Concomitant]
  9. PRAMIPEXOLE DIHYCHLLORIDE [Concomitant]
  10. FEXOFENADINE [Concomitant]
  11. CETIRIZINE [Concomitant]
  12. TRAMADOL HCL [Concomitant]
  13. IBUPROFEN [Concomitant]
  14. PANTOPRAZOLE [Concomitant]
  15. DOXYCYCLINE [Concomitant]

REACTIONS (9)
  - LYMPH NODE CALCIFICATION [None]
  - NIGHT SWEATS [None]
  - MASS [None]
  - GASTROOESOPHAGEAL REFLUX DISEASE [None]
  - SCAR [None]
  - ERYTHEMA [None]
  - CYST [None]
  - SPLEEN DISORDER [None]
  - WEIGHT DECREASED [None]
